FAERS Safety Report 9154807 (Version 1)
Quarter: 2013Q1

REPORT INFORMATION
  Report Type: Report from Study
  Country: US (occurrence: US)
  Receive Date: 20130311
  Receipt Date: 20130311
  Transmission Date: 20140127
  Serious: No
  Sender: FDA-Public Use
  Company Number: US-ABBOTT-12P-163-0970720-00

PATIENT
  Sex: Female

DRUGS (3)
  1. LUPRON DEPOT 11.25 MG [Suspect]
     Indication: ENDOMETRIOSIS
     Route: 030
     Dates: start: 20120730
  2. ALEVE [Suspect]
     Indication: PAIN
     Route: 048
  3. OXYCODONE [Concomitant]
     Indication: PAIN

REACTIONS (5)
  - Vaginal haemorrhage [Not Recovered/Not Resolved]
  - Menorrhagia [Recovered/Resolved]
  - Abdominal pain upper [Not Recovered/Not Resolved]
  - Pain [Not Recovered/Not Resolved]
  - Mood altered [Unknown]
